FAERS Safety Report 4783123-7 (Version None)
Quarter: 2005Q3

REPORT INFORMATION
  Report Type: 
  Country: None (occurrence: None)
  Receive Date: 20050928
  Receipt Date: 20050928
  Transmission Date: 20060218
  Serious: Yes (Disabling, Other)
  Sender: FDA-Public Use
  Company Number: None

PATIENT
  Age: 57 Year
  Sex: Female
  Weight: 58.9676 kg

DRUGS (2)
  1. DEPO-MEDROL [Suspect]
     Indication: SCIATICA
     Dosage: 80-ESI
     Dates: start: 20000101, end: 20000126
  2. DEPO-MEDROL [Suspect]
     Indication: SCIATICA
     Dosage: 80-ESI
     Dates: start: 20000209

REACTIONS (3)
  - ARACHNOIDITIS [None]
  - INCORRECT ROUTE OF DRUG ADMINISTRATION [None]
  - OFF LABEL USE [None]
